FAERS Safety Report 7939519-5 (Version None)
Quarter: 2011Q4

REPORT INFORMATION
  Report Type: 
  Country: None (occurrence: None)
  Receive Date: 20111125
  Receipt Date: 20111013
  Transmission Date: 20120403
  Serious: Yes (Hospitalization)
  Sender: FDA-Public Use
  Company Number: AT-ROCHE-720614

PATIENT
  Sex: Male
  Weight: 75 kg

DRUGS (13)
  1. ROPIVACAINE HYDROCHLORIDE [Concomitant]
     Indication: PAIN
     Dosage: REPORTED AS: ROPIVACAIN HYDROCHLORID (EPIDURAL ANESTHESIA)
     Route: 008
     Dates: start: 20100729, end: 20100803
  2. LASILACTONE [Concomitant]
     Indication: POLYURIA
     Dosage: DRUG NAME REPORTED AS LASILACTON 20/50 (FUROSEMIDE, SPIRONOLACTONE)
     Route: 048
     Dates: start: 20100525, end: 20100728
  3. ACETYLSALICYLIC ACID SRT [Concomitant]
     Dosage: START DATE BEFORE 21 APRIL 2009
     Route: 048
  4. NEUROBION [Concomitant]
     Indication: NEUROPATHY PERIPHERAL
     Route: 048
     Dates: start: 20090910, end: 20100728
  5. FUROSEMIDE [Concomitant]
     Indication: POLYURIA
     Route: 042
     Dates: start: 20100731, end: 20100804
  6. DICLOFENAC SODIUM [Concomitant]
     Indication: PAIN
     Route: 048
     Dates: start: 20100803, end: 20100806
  7. HYDROMORPHONE HCL [Concomitant]
     Indication: PAIN
     Route: 048
     Dates: start: 20100803, end: 20100805
  8. AVASTIN [Suspect]
     Indication: COLORECTAL CANCER
     Dosage: FORM: INFUSION
     Route: 042
     Dates: start: 20090612, end: 20100617
  9. CITALOPRAM HYDROBROMIDE [Concomitant]
     Indication: DEPRESSION
     Route: 048
     Dates: start: 20090513, end: 20100728
  10. PANTOPRAZOLE [Concomitant]
     Indication: GASTRITIS
     Route: 042
     Dates: start: 20100729, end: 20100731
  11. XELODA [Suspect]
     Indication: COLORECTAL CANCER
     Dosage: CYCLE: 8
     Route: 048
     Dates: start: 20090612, end: 20091112
  12. METOPROLOL SUCCINATE [Concomitant]
     Indication: CARDIAC FAILURE
     Dosage: METOPROLOL SUCCINATE 47.5
     Route: 048
  13. METAMIZOL [Concomitant]
     Indication: PAIN
     Route: 048
     Dates: start: 20100803, end: 20100806

REACTIONS (1)
  - ANASTOMOTIC COMPLICATION [None]
